FAERS Safety Report 25177805 (Version 4)
Quarter: 2025Q4

REPORT INFORMATION
  Report Type: Report from Study
  Country: CA (occurrence: CA)
  Receive Date: 20250409
  Receipt Date: 20251003
  Transmission Date: 20260117
  Serious: Yes (Disabling, Other)
  Sender: BIOCON
  Company Number: CA-MIMS-BCONMC-13203

PATIENT

DRUGS (5)
  1. HULIO [Suspect]
     Active Substance: ADALIMUMAB-FKJP
     Indication: Product used for unknown indication
     Dosage: 40 MILLIGRAM, BIWEEKLY
     Route: 058
     Dates: start: 20241021
  2. HULIO [Suspect]
     Active Substance: ADALIMUMAB-FKJP
     Dosage: UNK, BIWEEKLY
     Route: 058
     Dates: start: 20241021
  3. HULIO [Suspect]
     Active Substance: ADALIMUMAB-FKJP
  4. HULIO [Suspect]
     Active Substance: ADALIMUMAB-FKJP
  5. HULIO [Suspect]
     Active Substance: ADALIMUMAB-FKJP

REACTIONS (6)
  - Loss of personal independence in daily activities [Unknown]
  - Surgery [Unknown]
  - Product use issue [Unknown]
  - Product dose omission in error [Unknown]
  - Therapy interrupted [Unknown]
  - Socioeconomic precarity [Unknown]
